FAERS Safety Report 5302687-8 (Version None)
Quarter: 2007Q2

REPORT INFORMATION
  Report Type: 
  Country: None (occurrence: None)
  Receive Date: 20070419
  Receipt Date: 20070404
  Transmission Date: 20071010
  Serious: Yes (Death, Hospitalization)
  Sender: FDA-Public Use
  Company Number: DE-GENENTECH-238403

PATIENT
  Sex: Female
  Weight: 70 kg

DRUGS (2)
  1. HERCEPTIN [Suspect]
     Indication: BREAST CANCER
     Dosage: UNK, UNK
  2. TAXOL [Concomitant]
     Indication: DRUG USE FOR UNKNOWN INDICATION
     Dates: start: 20070215

REACTIONS (7)
  - CONFUSIONAL STATE [None]
  - COORDINATION ABNORMAL [None]
  - DEHYDRATION [None]
  - ELECTROLYTE IMBALANCE [None]
  - PARESIS [None]
  - PERSONALITY CHANGE [None]
  - SHOCK [None]
